FAERS Safety Report 9587436 (Version 4)
Quarter: 2013Q4

REPORT INFORMATION
  Report Type: Report from Study
  Country: FR (occurrence: FR)
  Receive Date: 20131003
  Receipt Date: 20131125
  Transmission Date: 20140711
  Serious: Yes (Hospitalization)
  Sender: FDA-Public Use
  Company Number: PHHO2013FR012639

PATIENT
  Sex: 0

DRUGS (9)
  1. ICL670A [Suspect]
     Indication: MYELODYSPLASTIC SYNDROME
     Dosage: 750 MG, UNK
     Route: 048
     Dates: start: 20130507
  2. AZACITIDINE [Suspect]
     Indication: MYELODYSPLASTIC SYNDROME
     Dosage: 140 MG, UNK
     Route: 058
     Dates: start: 20130506, end: 20130512
  3. AZACITIDINE [Suspect]
     Dosage: 140 MG, UNK
     Route: 058
     Dates: start: 20130822
  4. COLECALCIFEROL [Suspect]
     Indication: MYELODYSPLASTIC SYNDROME
     Dosage: 100000 U, UNK
     Route: 048
     Dates: start: 20130507
  5. LOXEN [Concomitant]
     Indication: HYPERTENSION
     Dosage: 40 MG, UNK
     Route: 048
  6. OMEPRAZOLE [Concomitant]
     Indication: ULCER
     Dosage: 20 MG, UNK
     Route: 048
  7. ZOLPIDEM [Concomitant]
     Indication: INSOMNIA
     Dosage: 5 MG, UNK
     Route: 048
  8. TRAVATAN [Concomitant]
     Indication: GLAUCOMA
     Dosage: 1 EYEDRP, UNK
  9. TAMSULOSINE [Concomitant]
     Indication: BENIGN PROSTATIC HYPERPLASIA
     Dosage: 0.4 MG, UNK
     Route: 048

REACTIONS (1)
  - Febrile neutropenia [Recovered/Resolved]
